FAERS Safety Report 14512736 (Version 2)
Quarter: 2019Q3

REPORT INFORMATION
  Report Type: Report from Study
  Country: US (occurrence: US)
  Receive Date: 20180209
  Receipt Date: 20190723
  Transmission Date: 20191004
  Serious: Yes (Hospitalization, Other)
  Sender: FDA-Public Use
  Company Number: US-EXELIXIS-XL18418012287

PATIENT
  Age: 57 Year
  Sex: Male
  Weight: 111.4 kg

DRUGS (1)
  1. XL184 [Suspect]
     Active Substance: CABOZANTINIB
     Indication: SOFT TISSUE NEOPLASM
     Dosage: 60 MG, QD
     Route: 048
     Dates: start: 20171017, end: 20171112

REACTIONS (2)
  - Angina pectoris [Recovering/Resolving]
  - Hypertension [Recovering/Resolving]

NARRATIVE: CASE EVENT DATE: 20171109
